FAERS Safety Report 20440616 (Version 2)
Quarter: 2022Q1

REPORT INFORMATION
  Report Type: Spontaneous
  Country: FI (occurrence: FI)
  Receive Date: 20220207
  Receipt Date: 20220216
  Transmission Date: 20220423
  Serious: Yes (Death, Life-Threatening, Hospitalization, Other)
  Sender: FDA-Public Use
  Company Number: FI-TAKEDA-2021TUS081430

PATIENT
  Age: 74 Year
  Sex: Female
  Weight: 60.998 kg

DRUGS (7)
  1. XGEVA [Suspect]
     Active Substance: DENOSUMAB
     Indication: Non-small cell lung cancer
     Dosage: UNK
     Route: 065
     Dates: start: 20201008
  2. MOBOCERTINIB [Suspect]
     Active Substance: MOBOCERTINIB
     Indication: Non-small cell lung cancer
     Dosage: UNK
     Route: 065
     Dates: start: 20200720, end: 20211210
  3. MOBOCERTINIB [Suspect]
     Active Substance: MOBOCERTINIB
     Dosage: 80 MILLIGRAM, QD
     Route: 065
     Dates: start: 202009
  4. MOBOCERTINIB [Suspect]
     Active Substance: MOBOCERTINIB
     Dosage: 160 MILLIGRAM, QD
     Route: 065
     Dates: start: 20200806
  5. CORTISONE [Suspect]
     Active Substance: CORTISONE
     Indication: Product used for unknown indication
     Dosage: UNK
     Route: 065
  6. DEXAMETHASONE [Concomitant]
     Active Substance: DEXAMETHASONE
     Indication: Metastases to meninges
     Dosage: 4 MILLIGRAM
     Route: 048
     Dates: start: 20210620
  7. ASPIRIN [Concomitant]
     Active Substance: ASPIRIN
     Indication: Cerebrovascular disorder
     Dosage: UNK
     Route: 065

REACTIONS (14)
  - Death [Fatal]
  - Progressive multifocal leukoencephalopathy [Not Recovered/Not Resolved]
  - Metastases to meninges [Unknown]
  - Metastases to central nervous system [Unknown]
  - Optic glioma [Recovered/Resolved]
  - Confusional state [Unknown]
  - Psychomotor skills impaired [Unknown]
  - General physical health deterioration [Unknown]
  - Balance disorder [Unknown]
  - Hypoacusis [Recovered/Resolved]
  - Pollakiuria [Unknown]
  - Amylase increased [Unknown]
  - Memory impairment [Recovered/Resolved]
  - Diarrhoea [Unknown]

NARRATIVE: CASE EVENT DATE: 20210601
